FAERS Safety Report 8290292-3 (Version None)
Quarter: 2012Q2

REPORT INFORMATION
  Report Type: 
  Country: None (occurrence: None)
  Receive Date: 20120413
  Receipt Date: 20120413
  Transmission Date: 20120825
  Serious: Yes (Death, Hospitalization)
  Sender: FDA-Public Use
  Company Number: None

PATIENT
  Sex: Female
  Weight: 71 kg

DRUGS (3)
  1. FLUOROURACIL [Suspect]
     Dosage: 875 MG
     Dates: end: 20060811
  2. ELLENCE [Suspect]
     Dosage: 174 MG
     Dates: end: 20060811
  3. CYCLOPHOSPHAMIDE [Suspect]
     Dosage: 875 MG
     Dates: end: 20060811

REACTIONS (6)
  - CARDIAC FAILURE CONGESTIVE [None]
  - CARDIO-RESPIRATORY ARREST [None]
  - DEEP VEIN THROMBOSIS [None]
  - PULMONARY INFARCTION [None]
  - PLEURAL EFFUSION [None]
  - PULMONARY EMBOLISM [None]
